FAERS Safety Report 4601393-2 (Version None)
Quarter: 2005Q1

REPORT INFORMATION
  Report Type: 
  Country: None (occurrence: None)
  Receive Date: 20050204
  Receipt Date: 20041101
  Transmission Date: 20050727
  Serious: Yes (Hospitalization)
  Sender: FDA-Public Use
  Company Number: 800162

PATIENT
  Age: 63 Year
  Sex: Female
  Weight: 81.6475 kg

DRUGS (26)
  1. DIANEAL [Suspect]
     Indication: PERITONEAL DIALYSIS
     Dosage: 13.9 L; QD; INTRAPERITONEAL
     Route: 033
     Dates: start: 19970101, end: 20041013
  2. FEOGEN [Concomitant]
  3. CALCIUM CARBONATE [Concomitant]
  4. HYDROXYZINE [Concomitant]
  5. AVANDIA [Concomitant]
  6. ERYTHROMYCIN [Concomitant]
  7. ULTRAM [Concomitant]
  8. PROTONIX [Concomitant]
  9. DIALYVITE 800 WITH ZINC [Concomitant]
  10. SYNTHROID [Concomitant]
  11. ZOCOR [Concomitant]
  12. HUMULIN N [Concomitant]
  13. INSULIN LISPRO [Concomitant]
  14. ALBUTEROL [Concomitant]
  15. ASPIRIN [Concomitant]
  16. IPRATROPIUM BROMIDE [Concomitant]
  17. EPOGEN [Concomitant]
  18. HUMIRA [Concomitant]
  19. NEPHROCAPS [Concomitant]
  20. ATARAX [Concomitant]
  21. PHENERGAN VC [Concomitant]
  22. MORPHINE SULFATE [Concomitant]
  23. PEPTO-BISMOL [Concomitant]
  24. DIFLUCAN [Concomitant]
  25. LEVAQUIN [Concomitant]
  26. VANCOMYCIN [Concomitant]

REACTIONS (2)
  - FUNGAL PERITONITIS [None]
  - MEDICAL DEVICE COMPLICATION [None]
